FAERS Safety Report 17688034 (Version 2)
Quarter: 2020Q2

REPORT INFORMATION
  Report Type: Report from Study
  Country: IT (occurrence: IT)
  Receive Date: 20200421
  Receipt Date: 20200514
  Transmission Date: 20200714
  Serious: Yes (Other)
  Sender: FDA-Public Use
  Company Number: IT-TEVA-2020-IT-1225411

PATIENT
  Age: 81 Year
  Sex: Male

DRUGS (6)
  1. PLAUNAC [Concomitant]
     Active Substance: OLMESARTAN MEDOXOMIL
     Dosage: 40MG
  2. ELIQUIS [Concomitant]
     Active Substance: APIXABAN
     Dosage: 2 DOSAGE FORMS
  3. AMIODARONE [Suspect]
     Active Substance: AMIODARONE
     Indication: ATRIAL FIBRILLATION
     Dosage: 100MG
     Route: 048
     Dates: start: 20181101, end: 20191101
  4. ZYLORIC 100 MG COMPRESSE [Concomitant]
     Dosage: 1 DOSAGE FORM
  5. TAPAZOLE [Concomitant]
     Active Substance: METHIMAZOLE
     Dosage: 3 DOSAGE FORMS
  6. FULCROSUPRA [Concomitant]
     Active Substance: FENOFIBRATE
     Dosage: 1 DOSAGE FORM

REACTIONS (2)
  - Hyperthyroidism [Not Recovered/Not Resolved]
  - Atrial fibrillation [Not Recovered/Not Resolved]

NARRATIVE: CASE EVENT DATE: 20191101
